FAERS Safety Report 9744255 (Version 1)
Quarter: 2013Q4

REPORT INFORMATION
  Report Type: Spontaneous
  Country: US (occurrence: US)
  Receive Date: 20131210
  Receipt Date: 20131210
  Transmission Date: 20140711
  Serious: Yes (Hospitalization)
  Sender: FDA-Public Use
  Company Number: US-BIOGENIDEC-2013BI102115

PATIENT
  Age: 43 Year
  Sex: Male

DRUGS (13)
  1. TECFIDERA [Suspect]
     Indication: MULTIPLE SCLEROSIS
     Route: 048
     Dates: start: 20130925, end: 20131002
  2. METFORMIN [Concomitant]
  3. ETOCDOLA (PRESUMED ETODOLAC) [Concomitant]
  4. GABPENTIN (PRESUMED GABAPENTIN) [Concomitant]
  5. SIMVASTATIN [Concomitant]
  6. FERROUS SULFATE [Concomitant]
  7. TIZADINE (PRESUMED TIZANIDINE) [Concomitant]
  8. ALPRAZOLAM [Concomitant]
  9. OMEPRAZOLE [Concomitant]
  10. AMATADINE (PRESUMED AMANTADINE) [Concomitant]
  11. OXYBUTYNIN [Concomitant]
  12. PROZAC [Concomitant]
  13. PROVIGIL [Concomitant]

REACTIONS (1)
  - Abdominal pain [Not Recovered/Not Resolved]
